FAERS Safety Report 18269567 (Version 1)
Quarter: 2020Q3

REPORT INFORMATION
  Report Type: Spontaneous
  Country: IE (occurrence: IE)
  Receive Date: 20200915
  Receipt Date: 20200915
  Transmission Date: 20201103
  Serious: Yes (Other)
  Sender: FDA-Public Use
  Company Number: IE-PFIZER INC-2020210655

PATIENT
  Sex: Male
  Weight: 49.8 kg

DRUGS (2)
  1. GENOTROPIN [Suspect]
     Active Substance: SOMATROPIN
     Indication: GROWTH HORMONE DEFICIENCY
     Dosage: 0.6 MG, 1X/DAY FOR 2 WEEKS
  2. GENOTROPIN [Suspect]
     Active Substance: SOMATROPIN
     Dosage: 1.2 MG, 1X/DAY (AT NIGHT)

REACTIONS (7)
  - Major depression [Unknown]
  - Condition aggravated [Unknown]
  - Hunger [Unknown]
  - Insomnia [Unknown]
  - Overdose [Unknown]
  - Intentional self-injury [Unknown]
  - Malaise [Unknown]

NARRATIVE: CASE EVENT DATE: 202008
